FAERS Safety Report 21212021 (Version 5)
Quarter: 2022Q4

REPORT INFORMATION
  Report Type: Spontaneous
  Country: JP (occurrence: JP)
  Receive Date: 20220815
  Receipt Date: 20221024
  Transmission Date: 20230112
  Serious: Yes (Life-Threatening, Hospitalization, Other)
  Sender: FDA-Public Use
  Company Number: JP-GLAXOSMITHKLINE-JP2022JPN116569

PATIENT

DRUGS (1)
  1. ALBUTEROL [Suspect]
     Active Substance: ALBUTEROL
     Indication: Wheezing
     Dosage: UNK
     Route: 055
     Dates: start: 20100603

REACTIONS (15)
  - Cardiogenic shock [Recovering/Resolving]
  - Ventricular tachycardia [Recovering/Resolving]
  - Respiratory rate increased [Recovering/Resolving]
  - Pallor [Recovered/Resolved]
  - Cyanosis [Recovered/Resolved]
  - Poor peripheral circulation [Recovered/Resolved]
  - Sinus tachycardia [Recovering/Resolving]
  - Non-compaction cardiomyopathy [Not Recovered/Not Resolved]
  - Left ventricular enlargement [Not Recovered/Not Resolved]
  - Mitral valve incompetence [Not Recovered/Not Resolved]
  - Congestive cardiomyopathy [Not Recovered/Not Resolved]
  - Cardiac failure congestive [Recovering/Resolving]
  - Myocardial fibrosis [Not Recovered/Not Resolved]
  - Cardiac failure acute [Recovered/Resolved]
  - Ventricular arrhythmia [Recovered/Resolved]

NARRATIVE: CASE EVENT DATE: 20100603
